FAERS Safety Report 22288988 (Version 2)
Quarter: 2023Q2

REPORT INFORMATION
  Report Type: Spontaneous
  Country: US (occurrence: US)
  Receive Date: 20230505
  Receipt Date: 20230509
  Transmission Date: 20230721
  Serious: Yes (Other)
  Sender: FDA-Public Use
  Company Number: US-SANOFI-01598849

PATIENT
  Age: 67 Year
  Sex: Female

DRUGS (1)
  1. LANTUS SOLOSTAR [Suspect]
     Active Substance: INSULIN GLARGINE
     Dosage: 40 IU, QD
     Dates: start: 2013

REACTIONS (3)
  - Cataract [Unknown]
  - Wound [Unknown]
  - Device issue [Unknown]
